FAERS Safety Report 14467413 (Version 2)
Quarter: 2018Q1

REPORT INFORMATION
  Report Type: Spontaneous
  Country: IN (occurrence: IN)
  Receive Date: 20180131
  Receipt Date: 20180209
  Transmission Date: 20180509
  Serious: No
  Sender: FDA-Public Use
  Company Number: IN-CIPLA LTD.-2018IN02431

PATIENT

DRUGS (6)
  1. LAMOTRIGINE. [Suspect]
     Active Substance: LAMOTRIGINE
     Dosage: 5 MG, BID
     Route: 048
     Dates: start: 201712
  2. LAMOTRIGINE. [Suspect]
     Active Substance: LAMOTRIGINE
     Indication: SEIZURE
     Dosage: 5 MG, FOR A WEEK
     Route: 048
  3. CLOBA                              /00479001/ [Concomitant]
     Indication: SEIZURE
     Dosage: 10 MG, UNK
     Route: 065
  4. CLOBA                              /00479001/ [Concomitant]
     Indication: SLEEP DISORDER
  5. SIZODON [Concomitant]
     Indication: SEIZURE
     Dosage: 0.5 MG, UNK
     Route: 065
  6. ENCORATE [Concomitant]
     Indication: SEIZURE
     Dosage: 200 MG, UNK
     Route: 065

REACTIONS (2)
  - Rash [Recovered/Resolved]
  - Pigmentation disorder [Not Recovered/Not Resolved]

NARRATIVE: CASE EVENT DATE: 20171201
